FAERS Safety Report 6629453 (Version 2)
Quarter: 2020Q3

REPORT INFORMATION
  Report Type: Spontaneous
  Country: FI (occurrence: FI)
  Receive Date: 20080430
  Receipt Date: 20080523
  Transmission Date: 20201104
  Serious: Yes (Other)
  Sender: FDA-Public Use
  Company Number: FI-ROCHE-560532

PATIENT
  Age: 79 Year
  Sex: Female

DRUGS (3)
  1. IBANDRONIC ACID. [Suspect]
     Active Substance: IBANDRONIC ACID
     Dosage: DOSING REGIMEN REPORTED AS: 50 MGX1.
     Route: 048
     Dates: start: 200509, end: 200710
  2. XELODA [Suspect]
     Active Substance: CAPECITABINE
     Dosage: DOSAGE REPORTED AS: 2G/DAY/ 2+1 WK CYCLE.
     Route: 048
     Dates: start: 200804
  3. XELODA [Suspect]
     Active Substance: CAPECITABINE
     Dosage: DOSAGE REPORTED AS: 2G/DAY/ 2+1 WK CYCLE.
     Route: 048
     Dates: start: 200401

REACTIONS (4)
  - Tooth abscess [Recovered/Resolved]
  - Loose tooth [Not Recovered/Not Resolved]
  - Osteonecrosis [Not Recovered/Not Resolved]
  - Impaired healing [Not Recovered/Not Resolved]

NARRATIVE: CASE EVENT DATE: 20070101
